FAERS Safety Report 13910612 (Version 1)
Quarter: 2017Q3

REPORT INFORMATION
  Report Type: Spontaneous
  Country: US (occurrence: US)
  Receive Date: 20170825
  Receipt Date: 20170825
  Transmission Date: 20171127
  Serious: Yes (Life-Threatening, Other)
  Sender: FDA-Public Use
  Company Number: None

PATIENT
  Sex: Male
  Weight: 131.85 kg

DRUGS (2)
  1. BUPROPN HCL [Suspect]
     Active Substance: BUPROPION HYDROCHLORIDE
     Indication: DEPRESSION
     Dosage: ?          QUANTITY:1 TABLET(S);?
     Route: 048
     Dates: start: 20170721, end: 20170824
  2. METOPROLOL. [Concomitant]
     Active Substance: METOPROLOL

REACTIONS (7)
  - Insomnia [None]
  - Anxiety [None]
  - Pruritus [None]
  - Neuralgia [None]
  - Formication [None]
  - Hypoaesthesia [None]
  - Product substitution issue [None]

NARRATIVE: CASE EVENT DATE: 20170824
